FAERS Safety Report 15213073 (Version 3)
Quarter: 2018Q4

REPORT INFORMATION
  Report Type: Spontaneous
  Country: FR (occurrence: FR)
  Receive Date: 20180730
  Receipt Date: 20181010
  Transmission Date: 20190204
  Serious: Yes (Death, Life-Threatening, Hospitalization, Other)
  Sender: FDA-Public Use
  Company Number: FR-MERCK KGAA-2052893

PATIENT
  Age: 80 Year
  Sex: Female
  Weight: 50 kg

DRUGS (21)
  1. PREDNISONE ARROW [Suspect]
     Active Substance: PREDNISONE
     Route: 040
     Dates: start: 20170911, end: 20170911
  2. NOVOTHYROX [Suspect]
     Active Substance: LEVOTHYROXINE SODIUM
     Route: 040
     Dates: start: 20170911, end: 20170911
  3. LASIX [Suspect]
     Active Substance: FUROSEMIDE
     Route: 041
  4. PARACETAMOL [Suspect]
     Active Substance: ACETAMINOPHEN
     Route: 048
     Dates: start: 20170911, end: 20170911
  5. CALCIUM CARBONATE W/COLECALCIFEROL(LEKOVIT CA) [Suspect]
     Active Substance: CALCIUM CARBONATE\CHOLECALCIFEROL
     Route: 040
     Dates: start: 20170911, end: 20170911
  6. EUTHYROX [Suspect]
     Active Substance: LEVOTHYROXINE SODIUM
     Indication: HYPOTHYROIDISM
     Route: 048
     Dates: start: 20170911, end: 20170911
  7. PREDNISONE ARROW [Suspect]
     Active Substance: PREDNISONE
     Route: 048
     Dates: start: 20170911, end: 20170911
  8. PARACETAMOL [Suspect]
     Active Substance: ACETAMINOPHEN
     Route: 040
     Dates: start: 20170911, end: 20170911
  9. METHOTREXATE. [Concomitant]
     Active Substance: METHOTREXATE
  10. ARIPIPRAZOLE. [Concomitant]
     Active Substance: ARIPIPRAZOLE
  11. ELIQUIS [Suspect]
     Active Substance: APIXABAN
     Route: 048
  12. CORDARONE [Suspect]
     Active Substance: AMIODARONE HYDROCHLORIDE
     Route: 048
     Dates: start: 20170911, end: 20170911
  13. ELIQUIS [Suspect]
     Active Substance: APIXABAN
     Route: 048
     Dates: start: 20170911, end: 20170911
  14. CALCIDOSE(LEKOVIT CA) [Suspect]
     Active Substance: CALCIUM CARBONATE\CHOLECALCIFEROL
     Route: 048
     Dates: start: 20170911, end: 20170911
  15. CORDARONE [Suspect]
     Active Substance: AMIODARONE HYDROCHLORIDE
     Route: 048
     Dates: start: 20170911, end: 20170911
  16. CORDARONE [Suspect]
     Active Substance: AMIODARONE HYDROCHLORIDE
     Route: 040
     Dates: start: 20170911, end: 20170911
  17. PARACETAMOL [Suspect]
     Active Substance: ACETAMINOPHEN
     Route: 048
  18. LASIX [Suspect]
     Active Substance: FUROSEMIDE
     Route: 048
     Dates: start: 20170911, end: 20170911
  19. DIGOXIN NATIVELLE [Suspect]
     Active Substance: DIGOXIN
     Route: 040
     Dates: start: 20170911, end: 20170911
  20. PARACETAMOL [Suspect]
     Active Substance: ACETAMINOPHEN
     Route: 040
     Dates: start: 20170911, end: 20170911
  21. ELIQUIS [Suspect]
     Active Substance: APIXABAN
     Route: 040
     Dates: start: 20170911, end: 20170911

REACTIONS (4)
  - Medication error [Fatal]
  - Off label use [Fatal]
  - Cardio-respiratory arrest [Fatal]
  - Incorrect route of product administration [Fatal]

NARRATIVE: CASE EVENT DATE: 20170911
